FAERS Safety Report 8916573 (Version 1)
Quarter: 2012Q4

REPORT INFORMATION
  Report Type: 
  Country: US (occurrence: US)
  Receive Date: 20121120
  Receipt Date: 20121120
  Transmission Date: 20130627
  Serious: Yes (Other)
  Sender: FDA-Public Use
  Company Number: US-009507513-1211USA007156

PATIENT
  Sex: Female
  Weight: 54.42 kg

DRUGS (1)
  1. IMPLANON [Suspect]
     Indication: CONTRACEPTION
     Dosage: 68 mg rod
     Route: 059
     Dates: start: 200911

REACTIONS (3)
  - Suicide attempt [Not Recovered/Not Resolved]
  - Affect lability [Not Recovered/Not Resolved]
  - Libido decreased [Not Recovered/Not Resolved]
